FAERS Safety Report 11159540 (Version 2)
Quarter: 2015Q2

REPORT INFORMATION
  Report Type: Report from Study
  Country: US (occurrence: US)
  Receive Date: 20150603
  Receipt Date: 20150619
  Transmission Date: 20150821
  Serious: Yes (Death)
  Sender: FDA-Public Use
  Company Number: US-AMGEN-USASL2015053003

PATIENT
  Age: 88 Year
  Sex: Female
  Weight: 49.89 kg

DRUGS (2)
  1. PROCRIT [Suspect]
     Active Substance: ERYTHROPOIETIN
     Indication: PLASMA CELL MYELOMA
     Dosage: 40000 UNIT, QWK
     Route: 058
     Dates: start: 201305, end: 201504
  2. REVLIMID [Concomitant]
     Active Substance: LENALIDOMIDE
     Indication: PLASMA CELL MYELOMA
     Dosage: 5 MG, UNK
     Dates: start: 201211, end: 201504

REACTIONS (1)
  - Gastrointestinal haemorrhage [Fatal]
